FAERS Safety Report 20264834 (Version 3)
Quarter: 2022Q1

REPORT INFORMATION
  Report Type: Report from Study
  Country: US (occurrence: US)
  Receive Date: 20211231
  Receipt Date: 20220120
  Transmission Date: 20220423
  Serious: Yes (Other)
  Sender: FDA-Public Use
  Company Number: US-GW PHARMA-202112USGW06426

PATIENT

DRUGS (1)
  1. EPIDIOLEX [Suspect]
     Active Substance: CANNABIDIOL
     Indication: Seizure
     Dosage: 320 MILLIGRAM, BID
     Route: 048

REACTIONS (7)
  - Seizure [Unknown]
  - Seizure [Unknown]
  - Fall [Not Recovered/Not Resolved]
  - Rib fracture [Unknown]
  - Fall [Not Recovered/Not Resolved]
  - Skin laceration [Unknown]
  - Nephrolithiasis [Unknown]

NARRATIVE: CASE EVENT DATE: 20211225
